FAERS Safety Report 9027325 (Version 2)
Quarter: 2013Q1

REPORT INFORMATION
  Report Type: Spontaneous
  Country: TR (occurrence: TR)
  Receive Date: 20130123
  Receipt Date: 20130306
  Transmission Date: 20140127
  Serious: Yes (Other)
  Sender: FDA-Public Use
  Company Number: TR-ALLERGAN-1300806US

PATIENT
  Age: 8 Year
  Sex: Male

DRUGS (2)
  1. ACULAR LS [Suspect]
     Indication: PRODUCT USED FOR UNKNOWN INDICATION
     Dosage: UNK
     Route: 047
  2. OCULOTECT [Concomitant]
     Indication: PRODUCT USED FOR UNKNOWN INDICATION

REACTIONS (1)
  - Papilloedema [Recovered/Resolved]
